FAERS Safety Report 19496219 (Version 1)
Quarter: 2021Q3

REPORT INFORMATION
  Report Type: Spontaneous
  Country: US (occurrence: US)
  Receive Date: 20210702
  Receipt Date: 20210702
  Transmission Date: 20211014
  Serious: No
  Sender: FDA-Public Use
  Company Number: None

PATIENT
  Age: 48 Year
  Sex: Female
  Weight: 166.05 kg

DRUGS (7)
  1. ERGOCALCIFEROL 1,250 MCG; GENERIC FOR DRISDOL [Suspect]
     Active Substance: ERGOCALCIFEROL
     Indication: VITAMIN D DEFICIENCY
     Dosage: ?          QUANTITY:1 CAPSULE(S);OTHER FREQUENCY:WEEK;?
     Route: 048
     Dates: start: 20210616
  2. ALLEGRA [Concomitant]
     Active Substance: FEXOFENADINE HYDROCHLORIDE
  3. ALBUTEROL. [Concomitant]
     Active Substance: ALBUTEROL
  4. DAILY VITAMIN [Concomitant]
     Active Substance: VITAMINS
  5. LEVOTHYROXINE. [Concomitant]
     Active Substance: LEVOTHYROXINE
  6. ACETAMINOPHEN AND CODEINE [Concomitant]
     Active Substance: ACETAMINOPHEN\CODEINE PHOSPHATE
  7. MEGA RED FISH OIL [Concomitant]

REACTIONS (3)
  - Gingival disorder [None]
  - Oral disorder [None]
  - Gingival bleeding [None]

NARRATIVE: CASE EVENT DATE: 20210702
